FAERS Safety Report 17907383 (Version 1)
Quarter: 2020Q2

REPORT INFORMATION
  Report Type: Spontaneous
  Country: DE (occurrence: DE)
  Receive Date: 20200617
  Receipt Date: 20200617
  Transmission Date: 20200714
  Serious: Yes (Hospitalization)
  Sender: FDA-Public Use
  Company Number: DE-PFIZER INC-2020233729

PATIENT
  Age: 81 Year
  Sex: Female
  Weight: 83 kg

DRUGS (11)
  1. PANTOPRAZOLE [Concomitant]
     Active Substance: PANTOPRAZOLE
     Dosage: 40 MG, 1-0-0-0
  2. ALLOPURINOL. [Concomitant]
     Active Substance: ALLOPURINOL
     Dosage: 300 MG, 1-0-0-0
  3. LIXIANA [Suspect]
     Active Substance: EDOXABAN TOSYLATE
     Dosage: 30 MG, 1X/DAY (1-0-0-0)
  4. OPIPRAMOL [Concomitant]
     Active Substance: OPIPRAMOL
     Dosage: 100 MG, 0-0-0-1
  5. AMLODIPINE [Concomitant]
     Active Substance: AMLODIPINE BESYLATE
     Dosage: 5 MG, 1-0-0-0
  6. ZOPICLON [Concomitant]
     Active Substance: ZOPICLONE
     Dosage: 3.75 MG, 0-0-0-1
  7. BISOPROLOL [Concomitant]
     Active Substance: BISOPROLOL
     Dosage: 5 MG, 1-0-0.5-0
  8. SERTRALINE HCL [Suspect]
     Active Substance: SERTRALINE HYDROCHLORIDE
     Dosage: 50 MG, 1X/DAY (1-0-0-0)
  9. FERRO-SANOL DUODENAL [Suspect]
     Active Substance: FERROUS GLYCINE SULFATE
     Dosage: 100 MG
  10. TORASEMID [Concomitant]
     Active Substance: TORSEMIDE
     Dosage: 20 MG, 2-1-0-0
  11. ULUNAR BREEZHALER [Concomitant]
     Active Substance: GLYCOPYRROLATE\INDACATEROL MALEATE
     Dosage: [INDACATEROL 43UG]/[GLYCOPYRRONIUM BROMIDE 85 ?G], 1-0-0-0

REACTIONS (6)
  - Nausea [Unknown]
  - General physical health deterioration [Unknown]
  - Atrial fibrillation [Unknown]
  - Melaena [Unknown]
  - Abdominal pain [Unknown]
  - Tachycardia [Unknown]
